FAERS Safety Report 6297835-X (Version None)
Quarter: 2009Q3

REPORT INFORMATION
  Report Type: 
  Country: None (occurrence: None)
  Receive Date: 20090805
  Receipt Date: 20090723
  Transmission Date: 20100115
  Serious: Yes (Hospitalization)
  Sender: FDA-Public Use
  Company Number: JP-EISAI INC.-E2090-00801-SPO-JP

PATIENT
  Age: 50 Year
  Sex: Male

DRUGS (1)
  1. EXCEGRAN [Suspect]
     Indication: EPILEPSY
     Route: 048
     Dates: start: 20090701

REACTIONS (1)
  - ANAEMIA [None]
